FAERS Safety Report 11479536 (Version 1)
Quarter: 2015Q3

REPORT INFORMATION
  Report Type: Spontaneous
  Country: US (occurrence: US)
  Receive Date: 20150909
  Receipt Date: 20150909
  Transmission Date: 20151125
  Serious: No
  Sender: FDA-Public Use
  Company Number: US-JAZZ-2015-US-007309

PATIENT
  Age: 33 Year
  Sex: Female
  Weight: 50.79 kg

DRUGS (10)
  1. XYREM [Suspect]
     Active Substance: SODIUM OXYBATE
     Dosage: 3.5 G, FIRST DOSE
     Route: 048
     Dates: start: 2015
  2. XYREM [Suspect]
     Active Substance: SODIUM OXYBATE
     Indication: NARCOLEPSY
     Dosage: UNKNOWN DOSE
     Route: 048
     Dates: start: 20150501, end: 20150509
  3. XYREM [Suspect]
     Active Substance: SODIUM OXYBATE
     Indication: CATAPLEXY
     Dosage: 3 G, BID
     Route: 048
     Dates: start: 20150510, end: 2015
  4. IRON [Concomitant]
     Active Substance: IRON
     Indication: PRODUCT USED FOR UNKNOWN INDICATION
     Dosage: UNK
     Dates: start: 20140101
  5. MULTIVITAMINS [Concomitant]
     Active Substance: VITAMINS
     Indication: PRODUCT USED FOR UNKNOWN INDICATION
     Dosage: UNK
     Dates: start: 20140101
  6. XYREM [Suspect]
     Active Substance: SODIUM OXYBATE
     Dosage: 3 G, SECOND DOSE
     Route: 048
     Dates: start: 2015
  7. XYREM [Suspect]
     Active Substance: SODIUM OXYBATE
     Dosage: DOSE ADJUSTMENTS
     Route: 048
  8. NUVIGIL [Concomitant]
     Active Substance: ARMODAFINIL
     Indication: SOMNOLENCE
     Dosage: 250 MG, UNK
     Dates: start: 20130101
  9. METFORMIN HCL [Concomitant]
     Active Substance: METFORMIN HYDROCHLORIDE
     Indication: PRODUCT USED FOR UNKNOWN INDICATION
     Dosage: 500 MG, BID
     Dates: start: 20140101
  10. METHYLPHENIDATE. [Concomitant]
     Active Substance: METHYLPHENIDATE
     Indication: SOMNOLENCE
     Dosage: UNK
     Dates: start: 20130101

REACTIONS (9)
  - Vomiting [Recovered/Resolved]
  - Contusion [Unknown]
  - Fall [Recovered/Resolved]
  - Weight decreased [Unknown]
  - Dysgeusia [Not Recovered/Not Resolved]
  - Injury [Unknown]
  - Nausea [Recovered/Resolved]
  - Joint injury [Unknown]
  - Somnambulism [Unknown]

NARRATIVE: CASE EVENT DATE: 201505
